FAERS Safety Report 6490550-9 (Version None)
Quarter: 2009Q4

REPORT INFORMATION
  Report Type: 
  Country: None (occurrence: None)
  Receive Date: 20091211
  Receipt Date: 20091130
  Transmission Date: 20100525
  Serious: Yes (Death, Hospitalization, Other)
  Sender: FDA-Public Use
  Company Number: US-PFIZER INC-2009223680

PATIENT
  Sex: Male
  Weight: 82.1 kg

DRUGS (6)
  1. SUTENT [Suspect]
     Dosage: 50 MG, 1X/DAY, 4/2 CYCLE
     Dates: start: 20080801
  2. SUTENT [Suspect]
     Dosage: 37.5 MG, 1X/DAY, 4/2 CYCLE
     Dates: start: 20090721, end: 20090811
  3. TYLENOL (CAPLET) [Concomitant]
     Dosage: 50 MG, 1X/DAY
  4. LISINOPRIL AND HYDROCHLOROTHIAZIDE [Concomitant]
     Dosage: 10/12.5 DAILY
  5. FERROUS SULFATE [Concomitant]
     Dosage: 325 MG, 1X/DAY
  6. ATENOLOL [Concomitant]

REACTIONS (8)
  - DEATH [None]
  - DEHYDRATION [None]
  - FLUID RETENTION [None]
  - GENERALISED OEDEMA [None]
  - HYPOALBUMINAEMIA [None]
  - PALMAR-PLANTAR ERYTHRODYSAESTHESIA SYNDROME [None]
  - PANCYTOPENIA [None]
  - PLEURAL EFFUSION [None]
